FAERS Safety Report 8511795-X (Version None)
Quarter: 2012Q3

REPORT INFORMATION
  Report Type: 
  Country: None (occurrence: None)
  Receive Date: 20120716
  Receipt Date: 20120712
  Transmission Date: 20120928
  Serious: Yes (Other)
  Sender: FDA-Public Use
  Company Number: US-PFIZER INC-2012168367

PATIENT
  Sex: Male
  Weight: 106.58 kg

DRUGS (2)
  1. XANAX [Suspect]
     Indication: ANXIETY
     Dosage: 0.25 MG, 3X/DAY
     Route: 048
     Dates: start: 20080701, end: 20120501
  2. CELEXA [Suspect]
     Indication: ANXIETY
     Dosage: 5 MG, 1X/DAY
     Route: 048
     Dates: start: 20080901, end: 20120401

REACTIONS (7)
  - PANIC ATTACK [None]
  - LETHARGY [None]
  - FEELING ABNORMAL [None]
  - ABDOMINAL DISTENSION [None]
  - FATIGUE [None]
  - THROAT TIGHTNESS [None]
  - DIZZINESS [None]
